FAERS Safety Report 4853615-0 (Version None)
Quarter: 2005Q4

REPORT INFORMATION
  Report Type: 
  Country: None (occurrence: None)
  Receive Date: 20051125
  Receipt Date: 20050405
  Transmission Date: 20060501
  Serious: Yes (Hospitalization)
  Sender: FDA-Public Use
  Company Number: US-JNJFOC-20050401983

PATIENT
  Age: 52 Year
  Sex: Female

DRUGS (4)
  1. LEVAQUIN [Suspect]
     Indication: BRONCHITIS
     Dosage: 500 MG; 250 MG
  2. LEVAQUIN [Suspect]
     Indication: URINARY TRACT INFECTION
     Dosage: 500 MG; 250 MG
  3. PREDNISONE TAB [Concomitant]
  4. METRONIDAZOLE [Concomitant]

REACTIONS (3)
  - CLOSTRIDIAL INFECTION [None]
  - SEPSIS [None]
  - URINARY TRACT INFECTION [None]
